FAERS Safety Report 23785728 (Version 9)
Quarter: 2025Q4

REPORT INFORMATION
  Report Type: Report from Study
  Country: MX (occurrence: MX)
  Receive Date: 20240425
  Receipt Date: 20251107
  Transmission Date: 20260118
  Serious: Yes (Other)
  Sender: TAKEDA
  Company Number: MX-TAKEDA-2022TUS069703

PATIENT
  Age: 2 Year
  Sex: Male

DRUGS (8)
  1. IDURSULFASE [Suspect]
     Active Substance: IDURSULFASE
     Dosage: UNK
  2. IDURSULFASE [Suspect]
     Active Substance: IDURSULFASE
     Dosage: UNK
  3. IDURSULFASE [Suspect]
     Active Substance: IDURSULFASE
     Dosage: UNK
  4. IDURSULFASE [Suspect]
     Active Substance: IDURSULFASE
     Dosage: 6 MILLIGRAM, 1/WEEK
  5. IDURSULFASE [Suspect]
     Active Substance: IDURSULFASE
     Dosage: UNK
  6. IDURSULFASE [Suspect]
     Active Substance: IDURSULFASE
     Dosage: UNK UNK, 1/WEEK
  7. IDURSULFASE [Suspect]
     Active Substance: IDURSULFASE
     Dosage: UNK UNK, 1/WEEK
  8. IDURSULFASE [Suspect]
     Active Substance: IDURSULFASE
     Dosage: UNK, 1/WEEK

REACTIONS (12)
  - Periorbital cellulitis [Recovering/Resolving]
  - Rash [Recovered/Resolved]
  - Rhinorrhoea [Recovering/Resolving]
  - Dacryocystitis [Recovering/Resolving]
  - Treatment noncompliance [Not Recovered/Not Resolved]
  - Product availability issue [Recovering/Resolving]
  - Product use issue [Not Recovered/Not Resolved]
  - Product dose omission issue [Not Recovered/Not Resolved]
  - Inappropriate schedule of product administration [Recovering/Resolving]
  - Cough [Recovering/Resolving]
  - Diarrhoea [Recovering/Resolving]
  - Pyrexia [Recovering/Resolving]

NARRATIVE: CASE EVENT DATE: 20220927
